FAERS Safety Report 9421348 (Version 2)
Quarter: 2013Q3

REPORT INFORMATION
  Report Type: Spontaneous
  Country: US (occurrence: US)
  Receive Date: 20130725
  Receipt Date: 20130729
  Transmission Date: 20140515
  Serious: Yes (Other)
  Sender: FDA-Public Use
  Company Number: US-PFIZER INC-2013217416

PATIENT
  Age: 51 Year
  Sex: Female
  Weight: 91.61 kg

DRUGS (9)
  1. CHANTIX [Suspect]
     Indication: SMOKING CESSATION THERAPY
     Dosage: UNK
     Dates: start: 20130717, end: 201307
  2. CHANTIX [Suspect]
     Dosage: 1 MG, 2X/DAY
     Dates: start: 201307
  3. DIAZEPAM [Concomitant]
     Indication: DEPRESSION
     Dosage: 10 MG, 2X/DAY
  4. DIAZEPAM [Concomitant]
     Indication: ANXIETY
  5. PROPRANOLOL [Concomitant]
     Dosage: 20 MG, 2X/DAY
  6. SAPHRIS [Concomitant]
     Dosage: 5 MG, DAILY
  7. VENLAFAXINE [Concomitant]
     Dosage: 150 MG, DAILY
  8. ADVAIR [Concomitant]
     Indication: ASTHMA
     Dosage: 250 MG, 2X/DAY
  9. PROAIR HFA [Concomitant]
     Indication: ASTHMA
     Dosage: UNK, AS NEEDED

REACTIONS (4)
  - Lower limb fracture [Unknown]
  - Foot fracture [Unknown]
  - Fatigue [Unknown]
  - Drug ineffective [Unknown]
